FAERS Safety Report 9647543 (Version 2)
Quarter: 2014Q1

REPORT INFORMATION
  Report Type: Spontaneous
  Country: US (occurrence: US)
  Receive Date: 20131028
  Receipt Date: 20140321
  Transmission Date: 20141002
  Serious: No
  Sender: FDA-Public Use
  Company Number: US-BIOGENIDEC-2013BI098640

PATIENT
  Age: 57 Year
  Sex: Female

DRUGS (2)
  1. AVONEX [Suspect]
     Indication: MULTIPLE SCLEROSIS
     Route: 030
  2. AVONEX [Suspect]
     Indication: MULTIPLE SCLEROSIS
     Route: 030
     Dates: start: 20051101, end: 20140228

REACTIONS (9)
  - Musculoskeletal disorder [Unknown]
  - Ankle fracture [Recovered/Resolved]
  - Piriformis syndrome [Not Recovered/Not Resolved]
  - Nasopharyngitis [Recovered/Resolved]
  - Depression [Recovered/Resolved]
  - Feeling abnormal [Unknown]
  - Pain [Unknown]
  - Fatigue [Not Recovered/Not Resolved]
  - Multiple sclerosis relapse [Not Recovered/Not Resolved]
